FAERS Safety Report 6195725-4 (Version None)
Quarter: 2009Q2

REPORT INFORMATION
  Report Type: 
  Country: None (occurrence: None)
  Receive Date: 20090520
  Receipt Date: 20070522
  Transmission Date: 20091009
  Serious: Yes (Other)
  Sender: FDA-Public Use
  Company Number: US-ASTRAZENECA-2006UW23843

PATIENT
  Age: 14576 Day
  Sex: Female
  Weight: 79.8 kg

DRUGS (22)
  1. SEROQUEL [Suspect]
     Indication: BIPOLAR DISORDER
     Dosage: 25 - 300 MG
     Route: 048
     Dates: start: 19980901
  2. SEROQUEL [Suspect]
     Route: 048
     Dates: end: 20050801
  3. RISPERDAL [Concomitant]
     Route: 065
     Dates: start: 20060101
  4. ZYPREXA [Concomitant]
     Route: 065
     Dates: start: 19980101, end: 19990101
  5. LITHIUM [Concomitant]
     Route: 065
  6. ALBUTEROL [Concomitant]
     Indication: ACUTE SINUSITIS
     Route: 065
  7. AMBIEN [Concomitant]
     Dosage: STRENGTH 5 - 10 MG
     Route: 065
  8. ATIVAN [Concomitant]
     Route: 065
  9. DEMEROL [Concomitant]
     Route: 030
  10. EFFEXOR [Concomitant]
     Route: 065
  11. GEODON [Concomitant]
     Route: 048
  12. GEODON [Concomitant]
     Route: 048
  13. KLONOPIN [Concomitant]
     Route: 048
  14. LEVOXYL [Concomitant]
     Route: 065
  15. LEXAPRO [Concomitant]
     Route: 065
  16. LIPITOR [Concomitant]
     Route: 048
  17. LOVASTATIN [Concomitant]
     Dosage: 40 - 80 MG
     Route: 065
  18. PHENERGAN [Concomitant]
     Route: 065
  19. PRILOSEC [Concomitant]
     Route: 065
  20. THYROID TAB [Concomitant]
     Route: 065
  21. TRAZODONE HCL [Concomitant]
     Route: 048
  22. VISTARIL [Concomitant]
     Indication: ANXIETY
     Route: 048

REACTIONS (29)
  - ABDOMINAL PAIN [None]
  - ACUTE SINUSITIS [None]
  - BIPOLAR DISORDER [None]
  - BRONCHITIS [None]
  - CELLULITIS [None]
  - CHEST PAIN [None]
  - CHRONIC OBSTRUCTIVE PULMONARY DISEASE [None]
  - DERMATITIS [None]
  - DIARRHOEA [None]
  - DYSLIPIDAEMIA [None]
  - DYSPNOEA [None]
  - EUSTACHIAN TUBE DYSFUNCTION [None]
  - GASTROENTERITIS [None]
  - GENERALISED ANXIETY DISORDER [None]
  - INFLUENZA [None]
  - IRRITABLE BOWEL SYNDROME [None]
  - MANIA [None]
  - MENOMETRORRHAGIA [None]
  - OBSESSIVE-COMPULSIVE DISORDER [None]
  - OTITIS MEDIA [None]
  - PALPITATIONS [None]
  - PANCREATITIS [None]
  - PANIC ATTACK [None]
  - PARANOIA [None]
  - POOR QUALITY SLEEP [None]
  - PSORIASIS [None]
  - SCHIZOAFFECTIVE DISORDER [None]
  - SUICIDAL IDEATION [None]
  - SUICIDE ATTEMPT [None]
